FAERS Safety Report 6284457-X (Version None)
Quarter: 2009Q3

REPORT INFORMATION
  Report Type: 
  Country: None (occurrence: None)
  Receive Date: 20090722
  Receipt Date: 20090710
  Transmission Date: 20100115
  Serious: No
  Sender: FDA-Public Use
  Company Number: 007038

PATIENT
  Sex: Male

DRUGS (2)
  1. PLETAL [Suspect]
     Dosage: 100 MG, BID, ORAL
     Route: 048
  2. CORONARY VASODILATORS [Concomitant]

REACTIONS (1)
  - EAR HAEMORRHAGE [None]
